FAERS Safety Report 13096051 (Version 2)
Quarter: 2017Q1

REPORT INFORMATION
  Report Type: Report from Study
  Country: US (occurrence: US)
  Receive Date: 20170109
  Receipt Date: 20170110
  Transmission Date: 20170428
  Serious: Yes (Hospitalization, Other)
  Sender: FDA-Public Use
  Company Number: US-ASTRAZENECA-2016SE16460

PATIENT
  Sex: Female
  Weight: 107.5 kg

DRUGS (9)
  1. WARFARIN [Concomitant]
     Active Substance: WARFARIN
     Dosage: DAILY
     Route: 048
     Dates: start: 2011
  2. SYMBICORT [Suspect]
     Active Substance: BUDESONIDE\FORMOTEROL FUMARATE DIHYDRATE
     Indication: CHRONIC OBSTRUCTIVE PULMONARY DISEASE
     Dosage: 160/4.5 UG,2 INHALATIONS,TWO TIMES A DAY
     Route: 055
     Dates: start: 2015
  3. OTC MUCUS TABLETS [Concomitant]
     Dosage: BID
     Route: 048
  4. THYROXINE [Concomitant]
     Active Substance: LEVOTHYROXINE
  5. REMACADE [Concomitant]
     Route: 042
  6. SYMBICORT [Suspect]
     Active Substance: BUDESONIDE\FORMOTEROL FUMARATE DIHYDRATE
     Indication: DYSPNOEA
     Dosage: 160/4.5 UG,2 INHALATIONS,TWO TIMES A DAY
     Route: 055
     Dates: start: 2015
  7. SYMBICORT [Suspect]
     Active Substance: BUDESONIDE\FORMOTEROL FUMARATE DIHYDRATE
     Indication: CHRONIC OBSTRUCTIVE PULMONARY DISEASE
     Dosage: 160/4.5UG,2 INHALATIONS,TWO TIMES A DAY
     Route: 055
     Dates: start: 20160112
  8. SYMBICORT [Suspect]
     Active Substance: BUDESONIDE\FORMOTEROL FUMARATE DIHYDRATE
     Indication: DYSPNOEA
     Dosage: 160/4.5UG,2 INHALATIONS,TWO TIMES A DAY
     Route: 055
     Dates: start: 20160112
  9. AMLODIPINE [Concomitant]
     Active Substance: AMLODIPINE BESYLATE
     Indication: BLOOD PRESSURE ABNORMAL
     Dosage: DAILY
     Route: 048

REACTIONS (12)
  - Macular degeneration [Unknown]
  - Rotator cuff syndrome [Unknown]
  - Intentional product misuse [Unknown]
  - Nervousness [Unknown]
  - Dementia [Unknown]
  - Off label use [Unknown]
  - Product use issue [Unknown]
  - Drug ineffective [Unknown]
  - Tremor [Unknown]
  - Device issue [Unknown]
  - Dysphonia [Unknown]
  - Body height decreased [Unknown]
